FAERS Safety Report 22302808 (Version 1)
Quarter: 2023Q2

REPORT INFORMATION
  Report Type: Spontaneous
  Country: US (occurrence: US)
  Receive Date: 20230510
  Receipt Date: 20230510
  Transmission Date: 20230721
  Serious: Yes (Other)
  Sender: FDA-Public Use
  Company Number: US-IGSA-BIG0023272

PATIENT
  Age: 61 Year
  Sex: Female
  Weight: 90.703 kg

DRUGS (7)
  1. GAMUNEX-C [Suspect]
     Active Substance: HUMAN IMMUNOGLOBULIN G
     Dosage: 195 GRAM, Q.3WK.
     Route: 042
     Dates: start: 20230417
  2. GAMUNEX-C [Suspect]
     Active Substance: HUMAN IMMUNOGLOBULIN G
     Dosage: 65 GRAM
     Route: 042
     Dates: start: 20230413
  3. GAMUNEX-C [Suspect]
     Active Substance: HUMAN IMMUNOGLOBULIN G
     Dosage: 195 GRAM, Q.3WK.
     Route: 042
     Dates: start: 1998
  4. INSULIN NOS [Concomitant]
     Active Substance: INSULIN NOS
  5. OZEMPIC [Concomitant]
     Active Substance: SEMAGLUTIDE
  6. NOVOLOG [Concomitant]
     Active Substance: INSULIN ASPART
  7. MIRALAX [Concomitant]
     Active Substance: POLYETHYLENE GLYCOL 3350

REACTIONS (4)
  - Bronchospasm [Recovering/Resolving]
  - Asthma [Recovering/Resolving]
  - Anaphylactic reaction [Recovering/Resolving]
  - Near death experience [Recovering/Resolving]

NARRATIVE: CASE EVENT DATE: 20221101
